FAERS Safety Report 14776920 (Version 27)
Quarter: 2022Q4

REPORT INFORMATION
  Report Type: Other
  Country: CA (occurrence: None)
  Receive Date: 20180419
  Receipt Date: 20221214
  Transmission Date: 20230113
  Serious: Yes (Hospitalization, Other)
  Sender: FDA-Public Use
  Company Number: CA-ROCHE-1412884

PATIENT
  Sex: Female

DRUGS (27)
  1. RITUXAN [Suspect]
     Active Substance: RITUXIMAB
     Indication: Dermatomyositis
     Route: 042
     Dates: start: 2014, end: 20211118
  2. RITUXAN [Suspect]
     Active Substance: RITUXIMAB
     Indication: Interstitial lung disease
     Dosage: SINGLE DOSES (DAY 1 ONLY)
     Route: 042
     Dates: start: 20140602, end: 20211118
  3. RITUXAN [Suspect]
     Active Substance: RITUXIMAB
     Indication: Myositis
     Dosage: LAST DOSE OF RITUXIMAB 05/APR/2018.
     Route: 042
     Dates: start: 20141205
  4. RITUXAN [Suspect]
     Active Substance: RITUXIMAB
     Indication: Antisynthetase syndrome
     Route: 042
     Dates: start: 20161004, end: 20161018
  5. RITUXAN [Suspect]
     Active Substance: RITUXIMAB
     Dosage: SINGLE DOSES (DAY 1 ONLY).
     Route: 042
     Dates: start: 20170411, end: 20171010
  6. RITUXAN [Suspect]
     Active Substance: RITUXIMAB
     Route: 042
     Dates: start: 20180405
  7. RITUXAN [Suspect]
     Active Substance: RITUXIMAB
     Route: 042
     Dates: start: 20221118
  8. DIPHENHYDRAMINE HYDROCHLORIDE [Suspect]
     Active Substance: DIPHENHYDRAMINE HYDROCHLORIDE
     Indication: Premedication
     Route: 048
     Dates: start: 20140602, end: 20160412
  9. DIPHENHYDRAMINE HYDROCHLORIDE [Suspect]
     Active Substance: DIPHENHYDRAMINE HYDROCHLORIDE
     Route: 048
     Dates: start: 20161004, end: 20211104
  10. METHYLPREDNISOLONE [Suspect]
     Active Substance: METHYLPREDNISOLONE
     Indication: Premedication
     Route: 042
     Dates: start: 20140602, end: 20150506
  11. METHYLPREDNISOLONE [Suspect]
     Active Substance: METHYLPREDNISOLONE
     Indication: Product used for unknown indication
     Route: 042
     Dates: start: 20161004, end: 20161016
  12. METHYLPREDNISOLONE [Suspect]
     Active Substance: METHYLPREDNISOLONE
     Route: 042
     Dates: start: 20181010
  13. BENADRYL [Suspect]
     Active Substance: DIPHENHYDRAMINE HYDROCHLORIDE
     Indication: Product used for unknown indication
     Route: 048
  14. RUXIENCE [Suspect]
     Active Substance: RITUXIMAB-PVVR
     Indication: Antisynthetase syndrome
     Route: 065
     Dates: start: 20220513, end: 20220527
  15. RUXIENCE [Suspect]
     Active Substance: RITUXIMAB-PVVR
     Indication: Interstitial lung disease
  16. SULFATRIM [Concomitant]
     Active Substance: SULFAMETHOXAZOLE\TRIMETHOPRIM
     Indication: Prophylaxis
  17. ACETAMINOPHEN [Concomitant]
     Active Substance: ACETAMINOPHEN
     Indication: Premedication
     Route: 048
     Dates: start: 20140602
  18. ALENDRONATE [Concomitant]
     Active Substance: ALENDRONATE SODIUM
  19. COUMADIN [Concomitant]
     Active Substance: WARFARIN SODIUM
  20. METFORMIN [Concomitant]
     Active Substance: METFORMIN HYDROCHLORIDE
  21. PREDNISONE [Concomitant]
     Active Substance: PREDNISONE
  22. LANSOPRAZOLE [Concomitant]
     Active Substance: LANSOPRAZOLE
  23. FOLIC ACID [Concomitant]
     Active Substance: FOLIC ACID
  24. LOPERAMIDE [Concomitant]
     Active Substance: LOPERAMIDE
  25. SEPTRA [Concomitant]
     Active Substance: SULFAMETHOXAZOLE\TRIMETHOPRIM
  26. CALCIUM [Concomitant]
     Active Substance: CALCIUM
  27. IRON [Concomitant]
     Active Substance: IRON

REACTIONS (45)
  - Asthenia [Unknown]
  - Loss of consciousness [Unknown]
  - Headache [Recovered/Resolved]
  - Hot flush [Recovered/Resolved]
  - Fatigue [Not Recovered/Not Resolved]
  - Infusion related reaction [Unknown]
  - Somnolence [Unknown]
  - Fatigue [Recovered/Resolved]
  - Nasopharyngitis [Not Recovered/Not Resolved]
  - Sinusitis [Not Recovered/Not Resolved]
  - Bronchitis [Not Recovered/Not Resolved]
  - Dyspnoea [Not Recovered/Not Resolved]
  - Asthenia [Unknown]
  - Nausea [Unknown]
  - Diarrhoea [Unknown]
  - Blood pressure increased [Unknown]
  - Somnolence [Unknown]
  - Blood pressure systolic increased [Unknown]
  - Heart rate increased [Unknown]
  - Respiratory rate increased [Unknown]
  - Oxygen saturation decreased [Unknown]
  - Blood pressure systolic abnormal [Unknown]
  - Erythema [Unknown]
  - Abdominal pain upper [Unknown]
  - Dyspepsia [Unknown]
  - Vomiting [Unknown]
  - Off label use [Unknown]
  - Swelling face [Unknown]
  - Eye swelling [Unknown]
  - Iron deficiency [Unknown]
  - Heart rate increased [Unknown]
  - Blood pressure fluctuation [Unknown]
  - Vomiting [Unknown]
  - Respiratory depression [Unknown]
  - Chest pain [Recovered/Resolved]
  - Ill-defined disorder [Unknown]
  - Rib fracture [Unknown]
  - Dermatomyositis [Unknown]
  - Interstitial lung disease [Unknown]
  - Muscular weakness [Unknown]
  - Drug ineffective [Unknown]
  - Adverse drug reaction [Unknown]
  - Myalgia [Unknown]
  - Arthralgia [Unknown]
  - Blood pressure diastolic abnormal [Unknown]

NARRATIVE: CASE EVENT DATE: 20140101
